FAERS Safety Report 22787315 (Version 2)
Quarter: 2023Q4

REPORT INFORMATION
  Report Type: Report from Study
  Country: US (occurrence: US)
  Receive Date: 20230804
  Receipt Date: 20231101
  Transmission Date: 20240110
  Serious: Yes (Other)
  Sender: FDA-Public Use
  Company Number: US-ABBVIE-5353880

PATIENT
  Sex: Female

DRUGS (2)
  1. HUMIRA [Suspect]
     Active Substance: ADALIMUMAB
     Indication: Hidradenitis
     Dosage: STRENGTH 40 MG
     Route: 058
     Dates: start: 20200522
  2. HUMIRA [Suspect]
     Active Substance: ADALIMUMAB
     Dosage: STRENGTH  40 MG
     Route: 058

REACTIONS (11)
  - Lipoma [Unknown]
  - Skin exfoliation [Unknown]
  - Abdominal wall cyst [Unknown]
  - Lethargy [Unknown]
  - Unevaluable event [Unknown]
  - Alopecia [Unknown]
  - Arthralgia [Unknown]
  - Hidradenitis [Recovering/Resolving]
  - Pain [Recovering/Resolving]
  - Skin discolouration [Unknown]
  - Musculoskeletal stiffness [Not Recovered/Not Resolved]
